FAERS Safety Report 24401634 (Version 4)
Quarter: 2025Q1

REPORT INFORMATION
  Report Type: Spontaneous
  Country: JP (occurrence: JP)
  Receive Date: 20241007
  Receipt Date: 20250108
  Transmission Date: 20250409
  Serious: Yes (Hospitalization)
  Sender: AMGEN
  Company Number: JP-KISSEI-TV20240782_P_1

PATIENT
  Age: 73 Year
  Sex: Male
  Weight: 58.7 kg

DRUGS (17)
  1. TAVNEOS [Suspect]
     Active Substance: AVACOPAN
     Indication: Anti-neutrophil cytoplasmic antibody positive vasculitis
     Dosage: 60 MG/DAY
     Route: 048
     Dates: start: 20240618, end: 20240925
  2. SULFAMETHOXAZOLE\TRIMETHOPRIM [Suspect]
     Active Substance: SULFAMETHOXAZOLE\TRIMETHOPRIM
     Indication: Antifungal prophylaxis
     Dosage: 2 DOSAGE FORM, QD
     Route: 048
     Dates: start: 20240920, end: 20240925
  3. PREDONINE [Concomitant]
     Active Substance: PREDNISOLONE
     Indication: Microscopic polyangiitis
     Dosage: 5 MILLIGRAM, QD
     Route: 048
     Dates: start: 20240624, end: 20240926
  4. RAMELTEON [Concomitant]
     Active Substance: RAMELTEON
     Indication: Product used for unknown indication
     Dosage: UNK, QD
     Route: 048
  5. BROTIZOLAM [Concomitant]
     Active Substance: BROTIZOLAM
     Dosage: UNK, QD
     Route: 048
  6. CLOPIDOGREL [Concomitant]
     Active Substance: CLOPIDOGREL BISULFATE
     Dosage: UNK, QD
     Route: 048
  7. VONOPRAZAN FUMARATE [Concomitant]
     Active Substance: VONOPRAZAN FUMARATE
     Dosage: UNK, QD
     Route: 048
  8. FOLIC ACID [Concomitant]
     Active Substance: FOLIC ACID
     Dosage: UNK, Q8H
     Route: 048
     Dates: start: 20240704
  9. VADADUSTAT [Concomitant]
     Active Substance: VADADUSTAT
     Dosage: UNK, QD
     Route: 048
     Dates: start: 20240628
  10. ALENDRONATE SODIUM [Concomitant]
     Active Substance: ALENDRONATE SODIUM
     Dosage: UNK UNK, QWK
     Route: 048
     Dates: start: 20240709
  11. POTASSIUM ASPARTATE [Concomitant]
     Active Substance: POTASSIUM ASPARTATE
     Dosage: UNK, Q8H
     Route: 048
  12. LINAGLIPTIN [Concomitant]
     Active Substance: LINAGLIPTIN
     Dosage: UNK, QD
     Route: 048
     Dates: start: 202408
  13. SENNOSIDES [Concomitant]
     Active Substance: SENNOSIDES
     Route: 048
  14. AMPHOTERICIN B [Concomitant]
     Active Substance: AMPHOTERICIN B
     Route: 049
  15. ONEALFA [Concomitant]
     Active Substance: ALFACALCIDOL
     Route: 048
  16. MIYA-BM [Concomitant]
     Active Substance: CLOSTRIDIUM BUTYRICUM SPORES STRAIN M-55
     Indication: Product used for unknown indication
     Route: 048
  17. AMPHOTERICIN B [Concomitant]
     Active Substance: AMPHOTERICIN B
     Route: 048
     Dates: start: 20240715

REACTIONS (1)
  - Drug-induced liver injury [Recovering/Resolving]

NARRATIVE: CASE EVENT DATE: 20240923
